FAERS Safety Report 25277596 (Version 1)
Quarter: 2025Q2

REPORT INFORMATION
  Report Type: Other
  Country: US (occurrence: US)
  Receive Date: 20250507
  Receipt Date: 20250507
  Transmission Date: 20250717
  Serious: Yes (Hospitalization, Other)
  Sender: APPCO PHARMA LLC
  Company Number: US-Appco Pharma LLC-2176318

PATIENT
  Age: 34 Year
  Sex: Male

DRUGS (1)
  1. CLOMIPHENE [Suspect]
     Active Substance: CLOMIPHENE
     Indication: Blood testosterone decreased

REACTIONS (3)
  - Myocardial infarction [Unknown]
  - Heart failure with reduced ejection fraction [Unknown]
  - Coronary artery thrombosis [Unknown]
